FAERS Safety Report 5768858-1 (Version None)
Quarter: 2008Q2

REPORT INFORMATION
  Report Type: 
  Country: None (occurrence: None)
  Receive Date: 20080612
  Receipt Date: 20080311
  Transmission Date: 20081010
  Serious: No
  Sender: FDA-Public Use
  Company Number: US-ABBOTT-08P-163-0442323-00

PATIENT
  Sex: Female
  Weight: 86.26 kg

DRUGS (3)
  1. HUMIRA [Suspect]
     Indication: PSORIATIC ARTHROPATHY
     Route: 058
     Dates: start: 20080225, end: 20080310
  2. HUMIRA [Suspect]
     Route: 058
     Dates: start: 20080317
  3. METHOTREXATE [Concomitant]
     Indication: PSORIATIC ARTHROPATHY
     Route: 048

REACTIONS (6)
  - BODY TEMPERATURE INCREASED [None]
  - HYPOAESTHESIA [None]
  - PARAESTHESIA [None]
  - PHARYNGITIS STREPTOCOCCAL [None]
  - SKIN EXFOLIATION [None]
  - SKIN HYPERTROPHY [None]
